FAERS Safety Report 5050406-5 (Version None)
Quarter: 2006Q2

REPORT INFORMATION
  Report Type: 
  Country: None (occurrence: None)
  Receive Date: 20060614
  Receipt Date: 20060412
  Transmission Date: 20061013
  Serious: Yes (Other)
  Sender: FDA-Public Use
  Company Number: 430406

PATIENT
  Age: 62 Year
  Sex: Female

DRUGS (4)
  1. BONIVA [Suspect]
     Indication: OSTEOPOROSIS
     Dosage: 150 MG 1 PER MONTH ORAL
     Route: 048
     Dates: start: 20050615
  2. FOSAMAX [Suspect]
     Indication: OSTEOPOROSIS
     Dosage: 1 PER WEEK ORAL
     Route: 048
     Dates: start: 20030615, end: 20050615
  3. GLUCOSAMINE (GLUCOSAMINE) [Concomitant]
  4. MULTIVITAMIN [Concomitant]

REACTIONS (4)
  - DENTAL CARIES [None]
  - DROOLING [None]
  - OPEN WOUND [None]
  - SALIVARY HYPERSECRETION [None]
